FAERS Safety Report 16755713 (Version 2)
Quarter: 2019Q4

REPORT INFORMATION
  Report Type: Spontaneous
  Country: US (occurrence: US)
  Receive Date: 20190829
  Receipt Date: 20191101
  Transmission Date: 20200122
  Serious: Yes (Other)
  Sender: FDA-Public Use
  Company Number: US-JNJFOC-20190835156

PATIENT
  Age: 68 Year
  Sex: Male

DRUGS (3)
  1. PREDNISONE. [Suspect]
     Active Substance: PREDNISONE
     Indication: PRODUCT USED FOR UNKNOWN INDICATION
     Route: 065
     Dates: start: 201809
  2. ZYTIGA [Suspect]
     Active Substance: ABIRATERONE ACETATE
     Indication: PRODUCT USED FOR UNKNOWN INDICATION
     Route: 048
     Dates: start: 201809
  3. LEUPROLIDE ACETATE. [Suspect]
     Active Substance: LEUPROLIDE ACETATE
     Indication: PRODUCT USED FOR UNKNOWN INDICATION
     Dosage: IN SHORTS
     Route: 065
     Dates: start: 201703

REACTIONS (3)
  - Neuralgia [Not Recovered/Not Resolved]
  - Hypoaesthesia [Not Recovered/Not Resolved]
  - Lung neoplasm malignant [Unknown]

NARRATIVE: CASE EVENT DATE: 201810
